FAERS Safety Report 18554127 (Version 1)
Quarter: 2020Q4

REPORT INFORMATION
  Report Type: Spontaneous
  Country: US (occurrence: US)
  Receive Date: 20201127
  Receipt Date: 20201127
  Transmission Date: 20210114
  Serious: Yes (Other)
  Sender: FDA-Public Use
  Company Number: US-ASTRAZENECA-2020SF55130

PATIENT
  Sex: Female

DRUGS (1)
  1. IMFINZI [Suspect]
     Active Substance: DURVALUMAB
     Dosage: UNKNOWN
     Route: 042

REACTIONS (3)
  - Metastases to central nervous system [Unknown]
  - Metastases to liver [Unknown]
  - Arthropathy [Unknown]
